FAERS Safety Report 19937134 (Version 2)
Quarter: 2021Q4

REPORT INFORMATION
  Report Type: Spontaneous
  Country: US (occurrence: None)
  Receive Date: 20211010
  Receipt Date: 20211104
  Transmission Date: 20220303
  Serious: Yes (Hospitalization, Other)
  Sender: FDA-Public Use
  Company Number: US-ROCHE-2930417

PATIENT
  Age: 63 Year
  Sex: Female
  Weight: 87.1 kg

DRUGS (25)
  1. ACTEMRA [Suspect]
     Active Substance: TOCILIZUMAB
     Indication: Acute respiratory failure
     Dosage: ONCE
     Route: 042
     Dates: start: 20210930, end: 20210930
  2. CLONAZEPAM [Suspect]
     Active Substance: CLONAZEPAM
     Indication: Product used for unknown indication
     Route: 048
     Dates: start: 20211002
  3. TRAMADOL [Concomitant]
     Active Substance: TRAMADOL
     Dosage: 100 MG = 2 TAB, PRN, PO, Q6 HOURS
     Route: 048
     Dates: start: 20210928
  4. ALBUTEROL [Concomitant]
     Active Substance: ALBUTEROL
     Dates: start: 20210928
  5. AMLODIPINE [Concomitant]
     Active Substance: AMLODIPINE BESYLATE
     Route: 048
     Dates: start: 20210929
  6. CARBAMAZEPINE [Concomitant]
     Active Substance: CARBAMAZEPINE
     Dosage: 2 TAB PO AT BEDTIME
     Route: 048
     Dates: start: 20210928
  7. CLONIDINE [Concomitant]
     Active Substance: CLONIDINE
     Dosage: 1 TAB PO BID
     Route: 048
     Dates: start: 20210928
  8. DEXAMETHASONE [Concomitant]
     Active Substance: DEXAMETHASONE
     Dates: start: 20210928
  9. DULOXETINE [Concomitant]
     Active Substance: DULOXETINE
     Dosage: 20 MG = 1 CAP, PO, BID
     Route: 048
     Dates: start: 20210928
  10. FUROSEMIDE [Concomitant]
     Active Substance: FUROSEMIDE
     Dates: start: 20211001
  11. GUAIFENESIN [Concomitant]
     Active Substance: GUAIFENESIN
     Dates: start: 20210930
  12. HEPARIN [Concomitant]
     Active Substance: HEPARIN SODIUM
  13. INSULIN ASPART [Concomitant]
     Active Substance: INSULIN ASPART
     Dates: start: 20210929
  14. LOSARTAN [Concomitant]
     Active Substance: LOSARTAN
     Dosage: 100 MG = 1 TAB, PO, QDAY
     Route: 048
     Dates: start: 20210929
  15. MELATONIN [Concomitant]
     Active Substance: MELATONIN
     Dates: start: 20210928
  16. ONDANSETRON [Concomitant]
     Active Substance: ONDANSETRON
     Dates: start: 20210929
  17. PANTOPRAZOLE [Concomitant]
     Active Substance: PANTOPRAZOLE
     Dosage: DELAYED RELEASE TABLET 40 MG = 1 TAB, PO, BID
     Route: 048
     Dates: start: 20210928
  18. POTASSIUM CHLORIDE [Concomitant]
     Active Substance: POTASSIUM CHLORIDE
     Dates: start: 20210928
  19. QUETIAPINE [Concomitant]
     Active Substance: QUETIAPINE
     Dates: start: 20210928
  20. ROSUVASTATIN [Concomitant]
     Active Substance: ROSUVASTATIN
     Dosage: 40 MG = 1 TAB, PO AT BEDTIME
     Route: 048
     Dates: start: 20210928
  21. SPIRONOLACTONE [Concomitant]
     Active Substance: SPIRONOLACTONE
     Dosage: 25 MG = 1 TAB, PO, QDAY
     Route: 048
     Dates: start: 20210929
  22. FERROUS SULFATE [Concomitant]
     Active Substance: FERROUS SULFATE
     Dosage: 325 MG = 1 TAB, PO, QDAY
     Route: 048
  23. LINZESS [Concomitant]
     Active Substance: LINACLOTIDE
     Dosage: 145 MCG = 1 CA, PO, QDAY
     Route: 048
  24. MYRBETRIQ [Concomitant]
     Active Substance: MIRABEGRON
     Dosage: EXTENDED RELEASE 50 MG = 1 TAB, PO, QDAY
     Route: 048
  25. VENTOLIN HFA [Concomitant]
     Active Substance: ALBUTEROL SULFATE
     Dosage: 90 MCG/INH INHALATION AEROSOL

REACTIONS (4)
  - Thrombosis [Recovering/Resolving]
  - Alanine aminotransferase increased [Unknown]
  - Aspartate aminotransferase increased [Unknown]
  - Off label use [Unknown]

NARRATIVE: CASE EVENT DATE: 20211002
